FAERS Safety Report 4485431-6 (Version None)
Quarter: 2004Q4

REPORT INFORMATION
  Report Type: 
  Country: None (occurrence: None)
  Receive Date: 20041026
  Receipt Date: 20041014
  Transmission Date: 20050328
  Serious: Yes (Death)
  Sender: FDA-Public Use
  Company Number: FR-JNJFOC-20041004427

PATIENT
  Age: 85 Year
  Sex: Female
  Weight: 65 kg

DRUGS (3)
  1. REMICADE [Suspect]
     Indication: RHEUMATOID ARTHRITIS
     Route: 042
  2. SOLUPRED [Suspect]
     Indication: RHEUMATOID ARTHRITIS
     Route: 049
  3. MOPRAL [Suspect]
     Indication: RHEUMATOID ARTHRITIS
     Route: 049

REACTIONS (1)
  - MYOCARDIAL INFARCTION [None]
